FAERS Safety Report 21690972 (Version 1)
Quarter: 2022Q4

REPORT INFORMATION
  Report Type: Report from Study
  Country: US (occurrence: US)
  Receive Date: 20221207
  Receipt Date: 20221207
  Transmission Date: 20230113
  Serious: Yes (Other)
  Sender: FDA-Public Use
  Company Number: US-ABBVIE-22K-163-4533717-00

PATIENT
  Sex: Female

DRUGS (4)
  1. HUMIRA [Suspect]
     Active Substance: ADALIMUMAB
     Indication: Crohn^s disease
     Dosage: FORM STRENGTH 40 MILLIGRAM?CF
     Route: 058
     Dates: end: 20220423
  2. PFIZER-BIONTECH COVID-19 VACCINE [Concomitant]
     Active Substance: TOZINAMERAN
     Indication: COVID-19 immunisation
     Dosage: TIME INTERVAL: 1 TOTAL: ONE IN ONCE
     Route: 030
  3. PFIZER-BIONTECH COVID-19 VACCINE [Concomitant]
     Active Substance: TOZINAMERAN
     Indication: COVID-19 immunisation
     Dosage: TIME INTERVAL: 1 TOTAL: ONE IN ONCE
     Route: 030
  4. PFIZER-BIONTECH COVID-19 VACCINE [Concomitant]
     Active Substance: TOZINAMERAN
     Indication: COVID-19 immunisation
     Dosage: TIME INTERVAL: 1 TOTAL: BOOSTER DOSE?ONE IN ONCE
     Route: 030

REACTIONS (17)
  - Knee operation [Unknown]
  - Blood cobalt increased [Unknown]
  - Arthropathy [Unknown]
  - Joint swelling [Unknown]
  - Nerve injury [Unknown]
  - Oral infection [Unknown]
  - Infection [Unknown]
  - Musculoskeletal disorder [Unknown]
  - Synovial cyst [Unknown]
  - Balance disorder [Unknown]
  - Facial pain [Not Recovered/Not Resolved]
  - Spinal stenosis [Unknown]
  - Asthenia [Unknown]
  - Weight decreased [Unknown]
  - Arthritis [Unknown]
  - Synovial cyst [Unknown]
  - Fall [Unknown]

NARRATIVE: CASE EVENT DATE: 20210101
